FAERS Safety Report 25331883 (Version 1)
Quarter: 2025Q2

REPORT INFORMATION
  Report Type: Spontaneous
  Country: DE (occurrence: DE)
  Receive Date: 20250519
  Receipt Date: 20250519
  Transmission Date: 20250716
  Serious: Yes (Hospitalization)
  Sender: PURDUE
  Company Number: DE-INDIVIOR UK LIMITED-INDV-162100-2025

PATIENT
  Age: 28 Year
  Sex: Male

DRUGS (4)
  1. BUPRENORPHINE [Suspect]
     Active Substance: BUPRENORPHINE
     Indication: Drug use disorder
     Dosage: 24 MILLIGRAM, QD
     Route: 060
  2. BUPRENORPHINE [Suspect]
     Active Substance: BUPRENORPHINE
     Route: 060
  3. BUPRENORPHINE [Suspect]
     Active Substance: BUPRENORPHINE
     Indication: Drug use disorder
     Dosage: 24 MILLIGRAM, DAILY
     Route: 060
  4. BUPRENORPHINE [Suspect]
     Active Substance: BUPRENORPHINE
     Route: 060

REACTIONS (2)
  - Drug detoxification [Recovered/Resolved]
  - Drug abuse [Recovering/Resolving]
